FAERS Safety Report 4610154-X (Version None)
Quarter: 2005Q1

REPORT INFORMATION
  Report Type: 
  Country: None (occurrence: None)
  Receive Date: 20050316
  Receipt Date: 20050307
  Transmission Date: 20050727
  Serious: Yes (Other)
  Sender: FDA-Public Use
  Company Number: A0548762B

PATIENT
  Age: 34 Year
  Sex: Female

DRUGS (3)
  1. TUMS [Suspect]
     Indication: DYSPEPSIA
     Route: 048
     Dates: start: 19980101, end: 19980101
  2. PRENATAL VITAMINS [Concomitant]
     Indication: PREGNANCY
     Route: 048
  3. LEVOTHYROXINE [Concomitant]
     Indication: HYPOTHYROIDISM
     Route: 048

REACTIONS (6)
  - CAESAREAN SECTION [None]
  - COMPLICATION OF DELIVERY [None]
  - DRUG EXPOSURE DURING PREGNANCY [None]
  - FOETAL DISTRESS SYNDROME [None]
  - GESTATIONAL DIABETES [None]
  - HYPERTENSION [None]
